FAERS Safety Report 20168417 (Version 1)
Quarter: 2021Q4

REPORT INFORMATION
  Report Type: Spontaneous
  Country: BE (occurrence: BE)
  Receive Date: 20211210
  Receipt Date: 20211210
  Transmission Date: 20220303
  Serious: Yes (Other)
  Sender: FDA-Public Use
  Company Number: BE-VIWITPHARMA-2021VWTLIT00006

PATIENT
  Age: 63 Year
  Sex: Male

DRUGS (13)
  1. SERTRALINE [Suspect]
     Active Substance: SERTRALINE HYDROCHLORIDE
     Indication: Depression
     Dosage: THE DOSE OF SERTRALINE WAS REDUCED TO HALF FROM 50MG LATER.
     Route: 065
  2. METHYLPREDNISOLONE [Interacting]
     Active Substance: METHYLPREDNISOLONE
     Indication: Organising pneumonia
     Dosage: 1MG/KG/DAY
     Route: 042
  3. METHYLPREDNISOLONE [Interacting]
     Active Substance: METHYLPREDNISOLONE
     Dosage: 0.5MG/KG/DAY
     Route: 042
  4. METHYLPREDNISOLONE [Interacting]
     Active Substance: METHYLPREDNISOLONE
     Dosage: 1MG/KG/DAY
     Route: 042
  5. METHYLPREDNISOLONE [Interacting]
     Active Substance: METHYLPREDNISOLONE
     Dosage: 0.75MG/KG/DAY
     Route: 042
  6. METHYLPREDNISOLONE [Interacting]
     Active Substance: METHYLPREDNISOLONE
     Dosage: 1MG/KG/DAY
     Route: 042
  7. METHYLPREDNISOLONE [Interacting]
     Active Substance: METHYLPREDNISOLONE
     Dosage: 0.5MG/KG/DAY
     Route: 042
  8. METHYLPREDNISOLONE [Interacting]
     Active Substance: METHYLPREDNISOLONE
     Route: 042
  9. OXYGEN [Interacting]
     Active Substance: OXYGEN
     Indication: Organising pneumonia
     Route: 065
  10. CORTISONE [Interacting]
     Active Substance: CORTISONE
     Indication: Organising pneumonia
     Route: 042
  11. CORTISONE [Interacting]
     Active Substance: CORTISONE
     Route: 042
  12. CORTISONE [Interacting]
     Active Substance: CORTISONE
     Route: 042
  13. CORTISONE [Interacting]
     Active Substance: CORTISONE
     Route: 042

REACTIONS (6)
  - Organising pneumonia [Recovering/Resolving]
  - Respiratory failure [Recovering/Resolving]
  - Hyperleukocytosis [Recovering/Resolving]
  - Pyrexia [Recovering/Resolving]
  - Productive cough [Recovering/Resolving]
  - Dyspnoea [Recovering/Resolving]

NARRATIVE: CASE EVENT DATE: 20190101
